FAERS Safety Report 9551558 (Version 1)
Quarter: 2013Q3

REPORT INFORMATION
  Report Type: Spontaneous
  Country: US (occurrence: None)
  Receive Date: 20130724
  Receipt Date: 20130724
  Transmission Date: 20140515
  Serious: Yes (Other)
  Sender: FDA-Public Use
  Company Number: PHEH2013US005656

PATIENT
  Sex: Female
  Weight: 80.3 kg

DRUGS (7)
  1. AFINITOR (RAD) TABLET, 10MG [Suspect]
     Indication: NEOPLASM
     Route: 048
  2. ATIVAN [Concomitant]
  3. LEVETIRACETAM [Concomitant]
  4. DEXAMETHASONE [Concomitant]
  5. TAMOXIFEN [Concomitant]
  6. OMEPRAZOLE [Concomitant]
  7. HYDROCHLOROTH [Concomitant]

REACTIONS (4)
  - Hepatic pain [None]
  - Convulsion [None]
  - Blood cholesterol increased [None]
  - Metastases to central nervous system [None]
